FAERS Safety Report 14992598 (Version 1)
Quarter: 2018Q2

REPORT INFORMATION
  Report Type: Spontaneous
  Country: DE (occurrence: DE)
  Receive Date: 20180609
  Receipt Date: 20180609
  Transmission Date: 20180711
  Serious: Yes (Hospitalization)
  Sender: FDA-Public Use
  Company Number: DE-TEVA-2018-DE-903163

PATIENT
  Age: 71 Year
  Sex: Male

DRUGS (8)
  1. LEVOTHYROXINE SODIUM. [Concomitant]
     Active Substance: LEVOTHYROXINE SODIUM
     Dosage: 75 MICROGRAM , 1-0-0-0 SO PAUSE
     Route: 065
  2. VENLAFAXINE [Suspect]
     Active Substance: VENLAFAXINE HYDROCHLORIDE
     Dosage: 75 MILLIGRAM DAILY; , 1-0-0-0
     Route: 065
  3. BISOPROLOL [Suspect]
     Active Substance: BISOPROLOL
     Dosage: 2.5 MILLIGRAM DAILY; , 1-0-0-0
     Route: 065
  4. METFORMIN [Concomitant]
     Active Substance: METFORMIN HYDROCHLORIDE
     Dosage: 250 MILLIGRAM DAILY;  1-0-0-0
     Route: 065
  5. ASS 100 [Concomitant]
     Active Substance: ASPIRIN
     Dosage: 100 MILLIGRAM DAILY; , 1-0-0-0
     Route: 065
  6. CANDESARTAN. [Suspect]
     Active Substance: CANDESARTAN
     Dosage: 8 MILLIGRAM DAILY; , 1-0-0-0
     Route: 065
  7. ZOPICLONE [Concomitant]
     Active Substance: ZOPICLONE
     Dosage: 7.5 MG, 0.5 BEI BEDARF
     Route: 065
  8. SIMVASTATIN. [Concomitant]
     Active Substance: SIMVASTATIN
     Dosage: 30 MILLIGRAM DAILY;  0-0-1-0
     Route: 065

REACTIONS (3)
  - Cerebrovascular disorder [Unknown]
  - Dysarthria [Unknown]
  - Condition aggravated [Unknown]
